FAERS Safety Report 5818077-5 (Version None)
Quarter: 2008Q3

REPORT INFORMATION
  Report Type: 
  Country: None (occurrence: None)
  Receive Date: 20080722
  Receipt Date: 20080710
  Transmission Date: 20090109
  Serious: Yes (Hospitalization)
  Sender: FDA-Public Use
  Company Number: US-PFIZER INC-2008053864

PATIENT
  Sex: Female
  Weight: 137.9 kg

DRUGS (14)
  1. SUTENT [Suspect]
     Indication: METASTATIC RENAL CELL CARCINOMA
     Route: 048
  2. ACCUPRIL [Suspect]
     Route: 048
     Dates: end: 20080426
  3. ALLOPURINOL [Concomitant]
     Route: 048
  4. CALCIUM WITH VITAMIN D [Concomitant]
     Route: 048
  5. VITAMIN B-COMPLEX, OTHER COMBINATIONS [Concomitant]
     Route: 048
  6. GLUCOTROL [Concomitant]
     Route: 048
  7. LABETALOL HYDROCHLORIDE [Concomitant]
     Route: 048
  8. TRIAMTERENE [Concomitant]
     Route: 048
  9. NEURONTIN [Concomitant]
     Route: 048
  10. PREMARIN [Concomitant]
     Route: 048
  11. TRAMADOL HCL [Concomitant]
     Route: 048
  12. TRICOR [Concomitant]
     Route: 048
  13. TYLENOL PM [Concomitant]
     Route: 048
  14. ZOLOFT [Concomitant]
     Route: 048

REACTIONS (1)
  - ANGIOEDEMA [None]
